FAERS Safety Report 11555619 (Version 1)
Quarter: 2015Q3

REPORT INFORMATION
  Report Type: Spontaneous
  Country: US (occurrence: US)
  Receive Date: 20150925
  Receipt Date: 20150925
  Transmission Date: 20151125
  Serious: Yes (Other)
  Sender: FDA-Public Use
  Company Number: US-TEVA-595177USA

PATIENT
  Age: 61 Year
  Sex: Female
  Weight: 62.06 kg

DRUGS (5)
  1. JAKAFI [Suspect]
     Active Substance: RUXOLITINIB
     Route: 048
     Dates: start: 20150607, end: 2015
  2. HYDROXYCARBAMIDE [Suspect]
     Active Substance: HYDROXYUREA
     Route: 065
     Dates: start: 2008
  3. BABY ASPIRIN [Concomitant]
     Active Substance: ASPIRIN
  4. ANAGRELIDE [Suspect]
     Active Substance: ANAGRELIDE
     Dates: start: 2015, end: 2015
  5. METOPROLOL [Concomitant]
     Active Substance: METOPROLOL

REACTIONS (9)
  - Night sweats [Recovered/Resolved]
  - Erythema [Recovering/Resolving]
  - Dizziness [Recovered/Resolved]
  - Platelet count increased [Unknown]
  - Palpitations [Recovered/Resolved]
  - Joint swelling [Recovering/Resolving]
  - Peripheral swelling [Recovering/Resolving]
  - Bone pain [Recovering/Resolving]
  - Myelofibrosis [Unknown]

NARRATIVE: CASE EVENT DATE: 2015
